FAERS Safety Report 5787828-0 (Version None)
Quarter: 2008Q2

REPORT INFORMATION
  Report Type: 
  Country: None (occurrence: None)
  Receive Date: 20080625
  Receipt Date: 20080623
  Transmission Date: 20081010
  Serious: Yes (Death, Hospitalization, Other)
  Sender: FDA-Public Use
  Company Number: PHEH2007US15344

PATIENT
  Sex: Female
  Weight: 57.142 kg

DRUGS (23)
  1. EXJADE [Suspect]
     Indication: IRON OVERLOAD
     Dosage: 2000 MG, QD
     Route: 048
     Dates: start: 20070504
  2. DYAZIDE [Concomitant]
     Dosage: 50/25
     Route: 048
  3. NEXIUM [Concomitant]
     Dosage: 20 UNK, QD
     Route: 048
  4. LIPITOR [Concomitant]
     Dosage: 40 UNK, QD
     Route: 048
  5. BEXTRA [Concomitant]
     Dosage: 20 UNK, UNK
  6. PRAVACHOL [Concomitant]
     Route: 048
  7. GLIPIZIDE [Concomitant]
  8. COLACE [Concomitant]
  9. LASIX [Concomitant]
  10. GENTAK [Concomitant]
  11. HUMULIN N [Concomitant]
  12. LEVOTHYROXINE SODIUM [Concomitant]
  13. METOPROLOL [Concomitant]
  14. OMEPRAZOLE [Concomitant]
  15. ZINC SULFATE [Concomitant]
  16. GABAPENTIN [Concomitant]
  17. NAPROXEN [Concomitant]
  18. MIRALAX [Concomitant]
  19. ASCORBIC ACID [Concomitant]
  20. AMPICILLIN [Concomitant]
     Indication: URINARY TRACT INFECTION
  21. TIMOLOL MALEATE [Concomitant]
  22. ALPHAGAN [Concomitant]
  23. XALATAN [Concomitant]

REACTIONS (13)
  - BLOOD CREATININE INCREASED [None]
  - BLOOD UREA INCREASED [None]
  - CONFUSIONAL STATE [None]
  - DEPRESSED LEVEL OF CONSCIOUSNESS [None]
  - HAEMATOCRIT DECREASED [None]
  - HAEMOGLOBIN DECREASED [None]
  - HEPATIC ENZYME INCREASED [None]
  - LEUKOCYTOSIS [None]
  - PYREXIA [None]
  - SEPSIS [None]
  - SERUM FERRITIN INCREASED [None]
  - URINARY TRACT INFECTION [None]
  - URINE ANALYSIS ABNORMAL [None]
